FAERS Safety Report 10578533 (Version 5)
Quarter: 2015Q1

REPORT INFORMATION
  Report Type: Report from Study
  Country: ES (occurrence: ES)
  Receive Date: 20141112
  Receipt Date: 20150127
  Transmission Date: 20150720
  Serious: Yes (Death, Hospitalization)
  Sender: FDA-Public Use
  Company Number: ES-ROCHE-1022552

PATIENT
  Age: 76 Year
  Sex: Female
  Weight: 45 kg

DRUGS (12)
  1. CARBOPLATIN. [Suspect]
     Active Substance: CARBOPLATIN
     Indication: OVARIAN CANCER
     Dosage: LAST DOSE PRIOR TO HEMODYNAMIC DYSFUNCTION/FAILURE: 24/NOV/2011
     Route: 042
     Dates: start: 20111015
  2. CIPROFLOXACIN. [Concomitant]
     Active Substance: CIPROFLOXACIN
     Route: 065
     Dates: start: 20111205, end: 20111213
  3. AUGMENTIN [Concomitant]
     Active Substance: AMOXICILLIN\CLAVULANATE POTASSIUM
     Route: 065
     Dates: start: 20111205, end: 20111213
  4. BEVACIZUMAB [Suspect]
     Active Substance: BEVACIZUMAB
     Indication: OVARIAN CANCER
     Dosage: LAST DOSE PRIOR TO HEMODYNAMIC DYSFUNCTION/FAILURE: 24/NOV/2011
     Route: 042
     Dates: start: 20111103
  5. PACLITAXEL. [Suspect]
     Active Substance: PACLITAXEL
     Indication: OVARIAN CANCER
     Dosage: LAST DOSE PRIOR TO HEMODYNAMIC DYSFUNCTION/FAILURE: 24/NOV/2011
     Route: 042
     Dates: start: 20111015
  6. OMEPRAZOLE. [Concomitant]
     Active Substance: OMEPRAZOLE
     Route: 065
     Dates: start: 20111108, end: 20111213
  7. MAYGACE [Concomitant]
     Dosage: 30 CM
     Route: 065
     Dates: start: 20111107, end: 20111213
  8. TRANKIMAZIN [Concomitant]
     Active Substance: ALPRAZOLAM
     Route: 065
     Dates: start: 2011, end: 20111213
  9. PARACETAMOL [Concomitant]
     Active Substance: ACETAMINOPHEN
     Route: 065
     Dates: start: 20111104, end: 20111213
  10. MYCOSTATIN [Concomitant]
     Active Substance: NYSTATIN
     Dosage: 3 TSP
     Route: 065
     Dates: start: 20111205, end: 20111213
  11. ADIRO [Concomitant]
     Active Substance: ASPIRIN
     Route: 065
     Dates: start: 20111108, end: 20111213
  12. PRIMPERAN [Concomitant]
     Active Substance: METOCLOPRAMIDE HYDROCHLORIDE
     Route: 065
     Dates: start: 201111, end: 20111213

REACTIONS (1)
  - Embolism venous [Fatal]

NARRATIVE: CASE EVENT DATE: 20111212
